FAERS Safety Report 13640035 (Version 1)
Quarter: 2017Q2

REPORT INFORMATION
  Report Type: Spontaneous
  Country: US (occurrence: US)
  Receive Date: 20170609
  Receipt Date: 20170609
  Transmission Date: 20170830
  Serious: No
  Sender: FDA-Public Use
  Company Number: US-ROCHE-673649

PATIENT
  Age: 53 Year
  Sex: Female
  Weight: 52.6 kg

DRUGS (5)
  1. PRECOSE [Concomitant]
     Active Substance: ACARBOSE
     Route: 065
  2. FLONASE [Concomitant]
     Active Substance: FLUTICASONE PROPIONATE
     Route: 065
  3. LEXAPRO [Concomitant]
     Active Substance: ESCITALOPRAM OXALATE
     Route: 065
  4. ACIPHEX [Concomitant]
     Active Substance: RABEPRAZOLE SODIUM
     Route: 065
  5. KLONOPIN [Suspect]
     Active Substance: CLONAZEPAM
     Indication: GASTROINTESTINAL MOTILITY DISORDER
     Dosage: DOSE:HALF TABLET OF 0.5 MG STRENGTH, 3-4XDAILY
     Route: 048
     Dates: start: 200907, end: 20091208

REACTIONS (1)
  - Drug effect decreased [Not Recovered/Not Resolved]

NARRATIVE: CASE EVENT DATE: 20091208
